FAERS Safety Report 9460267 (Version 2)
Quarter: 2013Q3

REPORT INFORMATION
  Report Type: Spontaneous
  Country: AU (occurrence: AU)
  Receive Date: 20130815
  Receipt Date: 20130827
  Transmission Date: 20140515
  Serious: Yes (Other)
  Sender: FDA-Public Use
  Company Number: AU-PFIZER INC-2013233208

PATIENT
  Age: 64 Year
  Sex: Female
  Weight: 65 kg

DRUGS (7)
  1. FLUCONAZOLE [Suspect]
     Dosage: UNK
     Route: 048
     Dates: start: 19940531
  2. GENTAMICIN SULFATE [Suspect]
     Dosage: UNK
     Route: 042
     Dates: start: 19940531, end: 19940605
  3. CEFTAZIDIME [Suspect]
     Dosage: UNK
     Route: 042
     Dates: start: 19940531, end: 19940605
  4. VANCOMYCIN HYDROCHLORIDE [Suspect]
     Dosage: UNK
     Route: 042
     Dates: start: 19940604, end: 19940605
  5. AMPHOTERICIN B [Suspect]
     Dosage: 1 DF, 1X/DAY
     Dates: start: 19940601
  6. NEUPOGEN [Suspect]
     Indication: AGRANULOCYTOSIS
     Dosage: 1 DF, 1X/DAY
     Dates: start: 19940601, end: 19940606
  7. PRIMAXIN [Suspect]
     Dosage: UNK
     Route: 042

REACTIONS (1)
  - Renal impairment [Not Recovered/Not Resolved]
